FAERS Safety Report 6327448-2 (Version None)
Quarter: 2009Q3

REPORT INFORMATION
  Report Type: 
  Country: None (occurrence: None)
  Receive Date: 20090825
  Receipt Date: 20090818
  Transmission Date: 20100115
  Serious: Yes (Hospitalization, Disabling)
  Sender: FDA-Public Use
  Company Number: US-PURDUE-USA-2009-0039693

PATIENT
  Sex: Male
  Weight: 89.9 kg

DRUGS (9)
  1. HYDROMORPHONE HCL INJECTABLE (SIMILAR TO 19-034) [Suspect]
     Indication: ANALGESIA
     Dosage: 2 MG, BOLUS
     Route: 042
     Dates: start: 20090801, end: 20090801
  2. NICARDIPINE HYDROCHLORIDE [Suspect]
     Indication: HYPERTENSION
     Dosage: 1200 MCG, SINGLE
     Route: 042
     Dates: start: 20090731, end: 20090731
  3. PHENYLEPHRINE [Suspect]
     Indication: HYPOTENSION
     Dosage: 50 MCG, MINUTE
     Route: 042
     Dates: start: 20090731, end: 20090731
  4. EPINEPHRINE [Suspect]
     Indication: HYPOTENSION
     Dosage: 2 MG, MINUTE
     Route: 042
     Dates: start: 20090731, end: 20090731
  5. FENTANYL [Suspect]
     Indication: ANAESTHESIA
     Dosage: 500 MCG, BOLUS
     Route: 042
     Dates: start: 20090731, end: 20090731
  6. MIDAZOLAM HCL [Suspect]
     Indication: ANAESTHESIA
     Dosage: 10 MG, BOLUS
     Route: 042
     Dates: start: 20090731, end: 20090731
  7. INSULIN [Concomitant]
     Indication: DIABETES MELLITUS
  8. CALCIUM CHLORIDE                   /00203801/ [Concomitant]
  9. SODIUM BICARBONATE IN PLASTIC CONTAINER [Concomitant]

REACTIONS (5)
  - APHASIA [None]
  - CONFUSIONAL STATE [None]
  - DELIRIUM [None]
  - ENCEPHALOPATHY [None]
  - UNRESPONSIVE TO STIMULI [None]
